FAERS Safety Report 10019514 (Version 1)
Quarter: 2014Q1

REPORT INFORMATION
  Report Type: Spontaneous
  Country: US (occurrence: US)
  Receive Date: 20140318
  Receipt Date: 20140318
  Transmission Date: 20141002
  Serious: No
  Sender: FDA-Public Use
  Company Number: US-BAXTER-2013BAX025655

PATIENT
  Sex: 0

DRUGS (1)
  1. DOPAMINE HYDROCHLORIDE AND 5% DEXTROSE INJECTION, USP [Suspect]
     Indication: PRODUCT USED FOR UNKNOWN INDICATION
     Dosage: 800MG/250ML
     Route: 042
     Dates: start: 20130523

REACTIONS (2)
  - Oxygen saturation decreased [Unknown]
  - Heart rate decreased [Unknown]
